FAERS Safety Report 7072300-0 (Version None)
Quarter: 2010Q4

REPORT INFORMATION
  Report Type: 
  Country: None (occurrence: None)
  Receive Date: 20101028
  Receipt Date: 20101028
  Transmission Date: 20110411
  Serious: Yes (Hospitalization)
  Sender: FDA-Public Use
  Company Number: None

PATIENT
  Sex: Male
  Weight: 68.5 kg

DRUGS (12)
  1. TORISEL [Suspect]
     Indication: PROSTATE CANCER
     Dosage: 25MG EVERY WEEK IV
     Route: 042
     Dates: start: 20100825, end: 20101025
  2. LORATADINE [Concomitant]
  3. DIPHENHYDRAMINE HCL [Concomitant]
  4. XALATAN [Concomitant]
  5. CALCIUM [Concomitant]
  6. FLOWMAX [Concomitant]
  7. TRUSOPT [Concomitant]
  8. ZOCOR [Concomitant]
  9. AVELOX [Concomitant]
  10. AVELOX [Concomitant]
  11. LEXAPRO [Concomitant]
  12. CLARITIN [Concomitant]

REACTIONS (2)
  - ASTHENIA [None]
  - DYSPNOEA [None]
